FAERS Safety Report 5065544-0 (Version None)
Quarter: 2006Q3

REPORT INFORMATION
  Report Type: 
  Country: None (occurrence: None)
  Receive Date: 20060731
  Receipt Date: 20060724
  Transmission Date: 20061208
  Serious: Yes (Disabling)
  Sender: FDA-Public Use
  Company Number: JP-JPN-A200602798

PATIENT
  Age: 3 Year
  Sex: Male

DRUGS (1)
  1. ZOVIRAX [Suspect]
     Indication: RASH
     Route: 048
     Dates: start: 20060714, end: 20060714

REACTIONS (2)
  - ANAPHYLACTIC REACTION [None]
  - WHEEZING [None]
